FAERS Safety Report 24741617 (Version 1)
Quarter: 2024Q4

REPORT INFORMATION
  Report Type: Spontaneous
  Country: US (occurrence: US)
  Receive Date: 20241217
  Receipt Date: 20241217
  Transmission Date: 20250115
  Serious: Yes (Other)
  Sender: AMGEN
  Company Number: US-AMGEN-USASP2024242681

PATIENT
  Age: 29 Year
  Sex: Female

DRUGS (4)
  1. PREDNISONE [Suspect]
     Active Substance: PREDNISONE
     Indication: Adrenogenital syndrome
     Dosage: 5 MILLIGRAM, QD
     Route: 065
  2. METFORMIN [Concomitant]
     Active Substance: METFORMIN HYDROCHLORIDE
     Indication: Polycystic ovaries
  3. DROSPIRENONE [Concomitant]
     Active Substance: DROSPIRENONE
     Indication: Adrenogenital syndrome
     Dosage: UNK
     Route: 065
  4. SPIRONOLACTONE [Concomitant]
     Active Substance: SPIRONOLACTONE
     Indication: Adrenogenital syndrome
     Dosage: 100 MILLIGRAM, QD

REACTIONS (3)
  - Hormone-secreting ovarian tumour [Unknown]
  - 17-hydroxyprogesterone increased [Unknown]
  - Blood testosterone increased [Unknown]
